FAERS Safety Report 8010996-7 (Version None)
Quarter: 2011Q4

REPORT INFORMATION
  Report Type: 
  Country: None (occurrence: None)
  Receive Date: 20111228
  Receipt Date: 20111222
  Transmission Date: 20120403
  Serious: Yes (Other)
  Sender: FDA-Public Use
  Company Number: JP-PFIZER INC-2011310940

PATIENT
  Age: 57 Year
  Sex: Female

DRUGS (2)
  1. CEFOPERAZONE SODIUM [Suspect]
     Dosage: 1 G DAILY
     Dates: start: 20100901, end: 20101001
  2. CLINDAMYCIN HCL [Suspect]
     Dosage: 600 MG DAILY
     Dates: start: 20100901, end: 20101001

REACTIONS (1)
  - TOXIC EPIDERMAL NECROLYSIS [None]
